FAERS Safety Report 25276451 (Version 2)
Quarter: 2025Q2

REPORT INFORMATION
  Report Type: Spontaneous
  Country: HR (occurrence: HR)
  Receive Date: 20250507
  Receipt Date: 20250508
  Transmission Date: 20250716
  Serious: Yes (Hospitalization)
  Sender: SANDOZ
  Company Number: HR-SANDOZ-SDZ2025HR028691

PATIENT

DRUGS (1)
  1. ADALIMUMAB [Suspect]
     Active Substance: ADALIMUMAB
     Indication: Product used for unknown indication
     Route: 065
     Dates: start: 202409

REACTIONS (8)
  - Condition aggravated [Unknown]
  - Abdominal pain [Unknown]
  - Pyrexia [Unknown]
  - Lymphadenopathy [Unknown]
  - Skin lesion [Unknown]
  - Urinary tract infection [Unknown]
  - Therapy change [Unknown]
  - Drug ineffective [Unknown]
